FAERS Safety Report 17006354 (Version 2)
Quarter: 2020Q1

REPORT INFORMATION
  Report Type: Spontaneous
  Country: TR (occurrence: TR)
  Receive Date: 20191107
  Receipt Date: 20200304
  Transmission Date: 20200409
  Serious: Yes (Hospitalization)
  Sender: FDA-Public Use
  Company Number: TR-NOVOPROD-694409

PATIENT
  Sex: Male
  Weight: 2 kg

DRUGS (6)
  1. GYNO FERRO SANOL [Concomitant]
     Indication: MINERAL SUPPLEMENTATION
     Dosage: 1 X 1
     Route: 064
     Dates: start: 20190210, end: 20190805
  2. PROGESTAN [Concomitant]
     Active Substance: PROGESTERONE
     Indication: ABORTION THREATENED
     Dosage: 100 MG, TID
     Route: 064
     Dates: start: 20190318, end: 20190805
  3. ACTRAPID [Suspect]
     Active Substance: INSULIN HUMAN
     Indication: TYPE 2 DIABETES MELLITUS
     Dosage: 12 IU, TID
     Route: 064
     Dates: start: 20190320
  4. PROGESTAN [Concomitant]
     Active Substance: PROGESTERONE
     Indication: ABORTION THREATENED
     Dosage: 50 MG/ML, QD
     Route: 064
     Dates: start: 20190318, end: 20190805
  5. ACTRAPID [Suspect]
     Active Substance: INSULIN HUMAN
     Dosage: 12 IU, TID
     Route: 063
     Dates: start: 20190805
  6. HUMULIN N [Concomitant]
     Active Substance: INSULIN HUMAN
     Indication: TYPE 2 DIABETES MELLITUS
     Dosage: 20 IU, QD
     Route: 064
     Dates: start: 20190316

REACTIONS (3)
  - Premature baby [Unknown]
  - Foetal exposure during pregnancy [Recovered/Resolved]
  - Immature respiratory system [Recovered/Resolved]

NARRATIVE: CASE EVENT DATE: 20190320
